FAERS Safety Report 18623100 (Version 1)
Quarter: 2020Q4

REPORT INFORMATION
  Report Type: Spontaneous
  Country: US (occurrence: US)
  Receive Date: 20201216
  Receipt Date: 20201216
  Transmission Date: 20210114
  Serious: No
  Sender: FDA-Public Use
  Company Number: US-APOTEX-2020AP022867

PATIENT
  Sex: Female

DRUGS (1)
  1. BUTORPHANOL TARTRATE NASAL SPRAY [Suspect]
     Active Substance: BUTORPHANOL TARTRATE
     Indication: COVID-19
     Dosage: 1 SPRAY EACH NOSTRIL, Q.4H.
     Route: 045

REACTIONS (3)
  - Prescription drug used without a prescription [Unknown]
  - Drug effective for unapproved indication [Unknown]
  - Intentional product misuse [Unknown]
